FAERS Safety Report 9664883 (Version 1)
Quarter: 2013Q4

REPORT INFORMATION
  Report Type: Spontaneous
  Country: JP (occurrence: JP)
  Receive Date: 20131101
  Receipt Date: 20131101
  Transmission Date: 20140711
  Serious: Yes (Hospitalization)
  Sender: FDA-Public Use
  Company Number: JP-WATSON-2013-19691

PATIENT
  Age: 73 Year
  Sex: Male

DRUGS (6)
  1. RAPAFLO (WATSON LABORATORIES) [Suspect]
     Indication: DYSURIA
     Dosage: UNK, UNKNOWN
     Route: 048
     Dates: start: 20130606, end: 201309
  2. RAPAFLO (WATSON LABORATORIES) [Suspect]
     Indication: BLADDER OUTLET OBSTRUCTION
  3. RAPAFLO (WATSON LABORATORIES) [Suspect]
     Indication: BENIGN PROSTATIC HYPERPLASIA
  4. AVOLVE [Concomitant]
     Indication: BENIGN PROSTATIC HYPERPLASIA
     Dosage: UNK, UNKNOWN
     Route: 048
     Dates: start: 20130606, end: 201309
  5. AVOLVE [Concomitant]
     Dosage: UNK, UNKNOWN
     Route: 048
     Dates: start: 20131011
  6. ZYLORIC [Concomitant]
     Indication: HYPERURICAEMIA
     Dosage: UNK, UNKNOWN
     Route: 048
     Dates: start: 20130606, end: 201309

REACTIONS (1)
  - Eosinophilic pneumonia [Unknown]
